FAERS Safety Report 10810648 (Version 1)
Quarter: 2015Q1

REPORT INFORMATION
  Report Type: Report from Study
  Country: US (occurrence: US)
  Receive Date: 20150217
  Receipt Date: 20150217
  Transmission Date: 20150721
  Serious: No
  Sender: FDA-Public Use
  Company Number: US-ABBVIE-14K-163-1270132-00

PATIENT
  Age: 42 Year
  Sex: Female
  Weight: 74.46 kg

DRUGS (1)
  1. HUMIRA [Suspect]
     Active Substance: ADALIMUMAB
     Indication: PSORIASIS
     Dates: end: 201306

REACTIONS (2)
  - Psoriasis [Not Recovered/Not Resolved]
  - Mycobacterium tuberculosis complex test positive [Recovered/Resolved]

NARRATIVE: CASE EVENT DATE: 201306
